FAERS Safety Report 24794313 (Version 5)
Quarter: 2025Q1

REPORT INFORMATION
  Report Type: Spontaneous
  Country: US (occurrence: US)
  Receive Date: 20241231
  Receipt Date: 20250327
  Transmission Date: 20250409
  Serious: No
  Sender: PFIZER
  Company Number: US-PFIZER INC-202400334636

PATIENT
  Age: 72 Year
  Sex: Female

DRUGS (1)
  1. XELJANZ [Suspect]
     Active Substance: TOFACITINIB CITRATE

REACTIONS (5)
  - Viral infection [Unknown]
  - Dysphonia [Unknown]
  - Cough [Unknown]
  - Nervousness [Unknown]
  - Arthralgia [Unknown]

NARRATIVE: CASE EVENT DATE: 20241225
